FAERS Safety Report 7362488-6 (Version None)
Quarter: 2011Q1

REPORT INFORMATION
  Report Type: 
  Country: None (occurrence: None)
  Receive Date: 20110318
  Receipt Date: 20100928
  Transmission Date: 20110831
  Serious: Yes (Death, Life-Threatening)
  Sender: FDA-Public Use
  Company Number: JP-ASTRAZENECA-2011SE14246

PATIENT
  Age: 27628 Day
  Sex: Male

DRUGS (8)
  1. SOLU-MEDROL [Concomitant]
     Indication: MENINGITIS ASEPTIC
     Route: 042
     Dates: start: 20100818, end: 20100820
  2. TANNALBIN [Concomitant]
     Indication: DIARRHOEA
     Route: 048
     Dates: start: 20100820
  3. TAKEPRON [Concomitant]
     Indication: PROPHYLAXIS AGAINST GASTROINTESTINAL ULCER
     Route: 048
     Dates: start: 20100620
  4. MEROPEN [Suspect]
     Indication: PNEUMONIA
     Route: 042
     Dates: start: 20100823, end: 20100825
  5. CEFTAZIDIME [Concomitant]
     Indication: PNEUMONIA
     Route: 042
     Dates: start: 20100818, end: 20100823
  6. SOLU-MEDROL [Concomitant]
     Indication: ENCEPHALITIS
     Route: 042
     Dates: start: 20100818, end: 20100820
  7. LOPEMIN [Concomitant]
     Indication: DIARRHOEA
     Route: 048
     Dates: start: 20100820
  8. GLOVENIN [Concomitant]
     Indication: POLYNEUROPATHY
     Route: 042
     Dates: start: 20100728, end: 20100729

REACTIONS (1)
  - ACUTE RESPIRATORY DISTRESS SYNDROME [None]
